FAERS Safety Report 4305818-1 (Version None)
Quarter: 2004Q1

REPORT INFORMATION
  Report Type: 
  Country: None (occurrence: None)
  Receive Date: 20040226
  Receipt Date: 20040226
  Transmission Date: 20041129
  Serious: Yes (Death)
  Sender: FDA-Public Use
  Company Number: None

PATIENT
  Age: 44 Year
  Sex: Male
  Weight: 86.1834 kg

DRUGS (1)
  1. METHADONE HCL [Suspect]
     Indication: INTERVERTEBRAL DISC PROTRUSION
     Dosage: 40 MG. EIGHT A DA ORAL
     Route: 048
     Dates: start: 20021001, end: 20031014

REACTIONS (2)
  - CARDIAC FAILURE [None]
  - DRUG TOXICITY [None]
